FAERS Safety Report 15619239 (Version 2)
Quarter: 2018Q4

REPORT INFORMATION
  Report Type: Spontaneous
  Country: US (occurrence: US)
  Receive Date: 20181114
  Receipt Date: 20181227
  Transmission Date: 20190205
  Serious: No
  Sender: FDA-Public Use
  Company Number: US-SA-2018SA311800

PATIENT
  Age: 58 Year
  Sex: Female

DRUGS (6)
  1. TURMERIC [CURCUMA LONGA ROOT] [Concomitant]
     Dosage: UNK UNK, QD
     Route: 048
     Dates: start: 20181003
  2. ACICLOVIR [Concomitant]
     Active Substance: ACYCLOVIR
     Indication: VIRAL INFECTION
     Dosage: 400 MG, BID
     Route: 048
     Dates: start: 20170815
  3. BIOTIN [Concomitant]
     Active Substance: BIOTIN
     Dosage: 1 MG, TID
     Route: 048
     Dates: start: 20181003
  4. LEMTRADA [Suspect]
     Active Substance: ALEMTUZUMAB
     Indication: MULTIPLE SCLEROSIS
     Dosage: 12 MG, QD
     Route: 041
     Dates: start: 20181003, end: 20181005
  5. ALENDRONATE [Concomitant]
     Active Substance: ALENDRONATE SODIUM
     Indication: OSTEOPOROSIS
     Dosage: 70 MG, QW
     Route: 048
     Dates: start: 20150915
  6. ZANTAC [Concomitant]
     Active Substance: RANITIDINE HYDROCHLORIDE
     Dosage: 150 MG, BID
     Route: 048
     Dates: start: 20180929, end: 20181006

REACTIONS (6)
  - Asthenia [Recovered/Resolved]
  - Body temperature increased [Recovered/Resolved]
  - Heart rate abnormal [Recovered/Resolved]
  - Headache [Recovered/Resolved]
  - Nausea [Recovered/Resolved]
  - Dizziness [Recovered/Resolved]

NARRATIVE: CASE EVENT DATE: 20181003
